FAERS Safety Report 10062277 (Version 1)
Quarter: 2014Q1

REPORT INFORMATION
  Report Type: Spontaneous
  Country: US (occurrence: None)
  Receive Date: 20140312
  Receipt Date: 20140312
  Transmission Date: 20141002
  Serious: Yes (Other)
  Sender: FDA-Public Use
  Company Number: E2080-00644-SPO-US

PATIENT
  Age: 59 Year
  Sex: Female

DRUGS (3)
  1. BANZEL [Suspect]
     Indication: EPILEPSY
     Route: 048
     Dates: start: 2008
  2. DEPAKTOTE (VALPROATE SEMISODIUM) [Concomitant]
  3. PHENOBARBITAL (PHENOBARBITAL) [Concomitant]

REACTIONS (1)
  - Convulsion [None]
